FAERS Safety Report 25646130 (Version 2)
Quarter: 2025Q3

REPORT INFORMATION
  Report Type: Spontaneous
  Country: IR (occurrence: IR)
  Receive Date: 20250805
  Receipt Date: 20250808
  Transmission Date: 20251020
  Serious: Yes (Other)
  Sender: PFIZER
  Company Number: IR-PFIZER INC-PV202500093731

PATIENT
  Age: 34 Year
  Sex: Male

DRUGS (1)
  1. CABERGOLINE [Suspect]
     Active Substance: CABERGOLINE
     Indication: Prolactin-producing pituitary tumour
     Dosage: 1 MG, TWICE A WEEK

REACTIONS (1)
  - Pituitary apoplexy [Recovered/Resolved]
